FAERS Safety Report 24928803 (Version 2)
Quarter: 2025Q1

REPORT INFORMATION
  Report Type: Report from Study
  Country: US (occurrence: US)
  Receive Date: 20250205
  Receipt Date: 20250214
  Transmission Date: 20250409
  Serious: Yes (Hospitalization)
  Sender: ROCHE
  Company Number: US-ROCHE-10000193832

PATIENT
  Age: 37 Year
  Sex: Female

DRUGS (20)
  1. OCRELIZUMAB [Suspect]
     Active Substance: OCRELIZUMAB
     Indication: Multiple sclerosis
     Route: 065
     Dates: start: 20211229, end: 20220112
  2. OCRELIZUMAB [Suspect]
     Active Substance: OCRELIZUMAB
     Route: 065
     Dates: start: 20220706, end: 20220706
  3. PHENTERMINE [Concomitant]
     Active Substance: PHENTERMINE
  4. VITAMINS [Concomitant]
     Active Substance: VITAMINS
     Dates: start: 201809
  5. ZINC [Concomitant]
     Active Substance: ZINC
  6. BACLOFEN [Concomitant]
     Active Substance: BACLOFEN
     Dates: start: 20220706
  7. ustekinemab [Concomitant]
     Dates: start: 20230427, end: 2024
  8. DULAGLUTIDE [Concomitant]
     Active Substance: DULAGLUTIDE
     Dates: start: 20230301
  9. MODAFINIL [Concomitant]
     Active Substance: MODAFINIL
     Dates: start: 20230110
  10. VITAMIN D [Concomitant]
     Active Substance: VITAMIN D NOS
     Dates: start: 20230110
  11. JUNEL [Concomitant]
     Active Substance: ETHINYL ESTRADIOL\NORETHINDRONE ACETATE
     Dates: start: 20230303
  12. CALCIUM [Concomitant]
     Active Substance: CALCIUM
     Dates: start: 2023
  13. MAGNESIUM [Concomitant]
     Active Substance: MAGNESIUM
     Dates: start: 2023
  14. IXEKIZUMAB [Concomitant]
     Active Substance: IXEKIZUMAB
     Dates: start: 20240305, end: 20241003
  15. SECUKINUMAB [Concomitant]
     Active Substance: SECUKINUMAB
     Dates: start: 2017, end: 2023
  16. TOPAMAX [Concomitant]
     Active Substance: TOPIRAMATE
     Dates: end: 2022
  17. BUPROPION [Concomitant]
     Active Substance: BUPROPION
     Dates: start: 20220725, end: 2023
  18. AZITHROMYCIN [Concomitant]
     Active Substance: AZITHROMYCIN
     Dates: start: 20220912, end: 20220917
  19. AMOXICILLIN [Concomitant]
     Active Substance: AMOXICILLIN
     Dates: start: 20220930, end: 20221007
  20. PREDNISONE [Concomitant]
     Active Substance: PREDNISONE
     Dates: start: 20230201, end: 20230208

REACTIONS (1)
  - Pharyngitis [Recovered/Resolved with Sequelae]

NARRATIVE: CASE EVENT DATE: 20240721
